FAERS Safety Report 15587171 (Version 1)
Quarter: 2018Q4

REPORT INFORMATION
  Report Type: Spontaneous
  Country: US (occurrence: US)
  Receive Date: 20181106
  Receipt Date: 20181106
  Transmission Date: 20190205
  Serious: Yes (Other)
  Sender: FDA-Public Use
  Company Number: None

PATIENT
  Age: 30 Year
  Sex: Male
  Weight: 99 kg

DRUGS (1)
  1. METHADONE [Suspect]
     Active Substance: METHADONE HYDROCHLORIDE
     Indication: DRUG DEPENDENCE
     Route: 048
     Dates: start: 20181103, end: 20181104

REACTIONS (6)
  - Malaise [None]
  - Medication dilution [None]
  - Product taste abnormal [None]
  - Hyperhidrosis [None]
  - Product dispensing issue [None]
  - Feeling of body temperature change [None]

NARRATIVE: CASE EVENT DATE: 20181103
